FAERS Safety Report 16352061 (Version 1)
Quarter: 2019Q2

REPORT INFORMATION
  Report Type: Report from Study
  Country: DK (occurrence: DK)
  Receive Date: 20190524
  Receipt Date: 20190524
  Transmission Date: 20190711
  Serious: Yes (Life-Threatening, Hospitalization)
  Sender: FDA-Public Use
  Company Number: DK-ROCHE-2300687

PATIENT
  Age: 44 Year
  Sex: Male
  Weight: 78.3 kg

DRUGS (12)
  1. IBUPROFEN. [Concomitant]
     Active Substance: IBUPROFEN
     Indication: MYALGIA
     Route: 065
     Dates: start: 20190421, end: 20190423
  2. RO7121661 (PD1-TIM3 BISPECIFIC ANTIBODY) [Suspect]
     Active Substance: INVESTIGATIONAL PRODUCT
     Indication: METASTATIC NEOPLASM
     Dosage: MOST RECENT DOSE OF RO 7121661 (PD1-TIM3 BISPECIFIC ANTIBODY) 1200 MG PRIOR TO SAE ONSET ON: 01/APR/
     Route: 042
     Dates: start: 20190318
  3. PREDNISOLON [PREDNISOLONE] [Suspect]
     Active Substance: PREDNISOLONE
     Indication: TROPONIN T INCREASED
     Route: 065
     Dates: start: 20190405, end: 20190411
  4. PREDNISOLON [PREDNISOLONE] [Suspect]
     Active Substance: PREDNISOLONE
     Route: 065
     Dates: start: 20190411, end: 20190411
  5. PARACETAMOL [Concomitant]
     Active Substance: ACETAMINOPHEN
     Route: 065
     Dates: start: 20190425
  6. MORPHINE [Suspect]
     Active Substance: MORPHINE
     Indication: RESTLESSNESS
     Route: 065
     Dates: start: 20190424, end: 20190424
  7. FRAGMIN [Concomitant]
     Active Substance: DALTEPARIN SODIUM
     Route: 065
     Dates: start: 20190424
  8. PREDNISOLON [PREDNISOLONE] [Suspect]
     Active Substance: PREDNISOLONE
     Route: 065
     Dates: start: 20190412, end: 20190417
  9. PREDNISOLON [PREDNISOLONE] [Suspect]
     Active Substance: PREDNISOLONE
     Route: 065
     Dates: start: 20190418, end: 20190423
  10. PREDNISOLON [PREDNISOLONE] [Suspect]
     Active Substance: PREDNISOLONE
     Route: 065
     Dates: start: 20190424
  11. PANTOPRAZOLE [Concomitant]
     Active Substance: PANTOPRAZOLE
     Indication: DYSPEPSIA
     Route: 065
     Dates: start: 20190411, end: 20190424
  12. ESOMEPRAZOLE. [Concomitant]
     Active Substance: ESOMEPRAZOLE MAGNESIUM
     Indication: DYSPEPSIA
     Route: 065
     Dates: start: 20190424

REACTIONS (5)
  - Troponin T increased [Not Recovered/Not Resolved]
  - Sinus tachycardia [Not Recovered/Not Resolved]
  - Respiratory failure [Recovered/Resolved]
  - Aspartate aminotransferase increased [Recovered/Resolved]
  - Immune-mediated necrotising myopathy [Not Recovered/Not Resolved]

NARRATIVE: CASE EVENT DATE: 20190402
